FAERS Safety Report 24855348 (Version 1)
Quarter: 2025Q1

REPORT INFORMATION
  Report Type: Spontaneous
  Country: CZ (occurrence: CZ)
  Receive Date: 20250117
  Receipt Date: 20250117
  Transmission Date: 20250409
  Serious: Yes (Death, Hospitalization)
  Sender: STRIDES
  Company Number: CZ-STRIDES ARCOLAB LIMITED-2025SP000738

PATIENT
  Age: 63 Year
  Sex: Male

DRUGS (8)
  1. MYCOPHENOLATE MOFETIL [Suspect]
     Active Substance: MYCOPHENOLATE MOFETIL
     Indication: Immunosuppressant drug therapy
     Route: 065
     Dates: start: 2012, end: 2012
  2. MYCOPHENOLATE MOFETIL [Suspect]
     Active Substance: MYCOPHENOLATE MOFETIL
     Indication: Heart transplant
     Route: 065
     Dates: start: 2012
  3. PREDNISOLONE [Suspect]
     Active Substance: PREDNISOLONE
     Indication: Immunosuppressant drug therapy
     Route: 065
     Dates: start: 2012, end: 2012
  4. PREDNISOLONE [Suspect]
     Active Substance: PREDNISOLONE
     Indication: Heart transplant
     Route: 065
     Dates: start: 2012
  5. PROGRAF [Suspect]
     Active Substance: TACROLIMUS
     Indication: Immunosuppressant drug therapy
     Route: 065
     Dates: start: 2012, end: 2012
  6. PROGRAF [Suspect]
     Active Substance: TACROLIMUS
     Indication: Heart transplant
  7. AMOXICILLIN\CLAVULANIC ACID [Concomitant]
     Active Substance: AMOXICILLIN\CLAVULANIC ACID
     Indication: Evidence based treatment
     Route: 042
     Dates: start: 2012
  8. PIPERACILLIN SODIUM\TAZOBACTAM SODIUM [Concomitant]
     Active Substance: PIPERACILLIN SODIUM\TAZOBACTAM SODIUM
     Indication: Evidence based treatment
     Route: 042
     Dates: start: 2012

REACTIONS (10)
  - Respiratory failure [Fatal]
  - Leukopenia [Fatal]
  - Neutropenia [Fatal]
  - Sepsis [Fatal]
  - Pseudomonas infection [Fatal]
  - Escherichia infection [Fatal]
  - Lung abscess [Fatal]
  - Pneumonia necrotising [Fatal]
  - Cytomegalovirus infection [Unknown]
  - Bronchopulmonary aspergillosis [Recovered/Resolved]

NARRATIVE: CASE EVENT DATE: 20120101
